FAERS Safety Report 4511408-8 (Version None)
Quarter: 2004Q4

REPORT INFORMATION
  Report Type: 
  Country: None (occurrence: None)
  Receive Date: 20041129
  Receipt Date: 20040726
  Transmission Date: 20050328
  Serious: Yes (Life-Threatening, Hospitalization, Disabling, Other)
  Sender: FDA-Public Use
  Company Number: US-BRISTOL-MYERS SQUIBB COMPANY-12652129

PATIENT
  Age: 19 Year
  Sex: Male

DRUGS (7)
  1. ABILIFY [Suspect]
     Indication: PSYCHOTIC DISORDER
     Route: 048
     Dates: start: 20011024, end: 20030113
  2. ESKALITH CR [Concomitant]
     Dates: start: 20020510
  3. PROZAC [Concomitant]
     Dates: start: 20021118
  4. SERZONE [Concomitant]
     Dates: start: 20021113
  5. GEODON [Concomitant]
     Dates: start: 20021127
  6. RISPERDAL [Concomitant]
     Dates: start: 20021205
  7. ZYPREXA [Concomitant]
     Dates: start: 20021017

REACTIONS (1)
  - SUICIDAL IDEATION [None]
